FAERS Safety Report 23598001 (Version 8)
Quarter: 2024Q4

REPORT INFORMATION
  Report Type: Spontaneous
  Country: US (occurrence: US)
  Receive Date: 20240305
  Receipt Date: 20241213
  Transmission Date: 20250115
  Serious: Yes (Hospitalization)
  Sender: CSL BEHRING
  Company Number: US-BEH-2024168952

PATIENT
  Age: 53 Year
  Sex: Female

DRUGS (29)
  1. HIZENTRA [Suspect]
     Active Substance: HUMAN IMMUNOGLOBULIN G
     Indication: Immunodeficiency common variable
     Dosage: 17 GRAM, QW
     Route: 058
  2. HIZENTRA [Suspect]
     Active Substance: HUMAN IMMUNOGLOBULIN G
     Dosage: 17 GRAM, QW
     Route: 058
  3. HIZENTRA [Suspect]
     Active Substance: HUMAN IMMUNOGLOBULIN G
     Dosage: 17 G, QW
     Route: 058
  4. DOXYCYCLINE [Concomitant]
     Active Substance: DOXYCYCLINE
     Dosage: 100 MG
  5. LEVOTHYROXINE [Concomitant]
     Active Substance: LEVOTHYROXINE
     Dosage: 75 MG
  6. METFORMIN [Concomitant]
     Active Substance: METFORMIN HYDROCHLORIDE
     Dosage: 500 MG
  7. ALBUTEROL SULFATE [Concomitant]
     Active Substance: ALBUTEROL SULFATE
  8. ATORVASTATIN [Concomitant]
     Active Substance: ATORVASTATIN
     Dosage: 20 MG
  9. AZELASTIN HYSAN [Concomitant]
     Dosage: 0.5%
  10. BACLOFEN [Concomitant]
     Active Substance: BACLOFEN
     Dosage: 10 MG
  11. CELECOXIB [Concomitant]
     Active Substance: CELECOXIB
     Dosage: 200 MG
  12. DIVALPROEX SODIUM [Concomitant]
     Active Substance: DIVALPROEX SODIUM
     Dosage: 500 MG
  13. FLOVENT HFA [Concomitant]
     Active Substance: FLUTICASONE PROPIONATE
     Dosage: 44 MCG
  14. FLUTICASONE [Concomitant]
     Active Substance: FLUTICASONE
     Dosage: 50 MCG
  15. FOLIC ACID [Concomitant]
     Active Substance: FOLIC ACID
  16. GABAPENTIN [Concomitant]
     Active Substance: GABAPENTIN
  17. LITHIUM CARBONATE [Concomitant]
     Active Substance: LITHIUM CARBONATE
  18. METHOTREXATE [Concomitant]
     Active Substance: METHOTREXATE
  19. MONTELUKAST [Concomitant]
     Active Substance: MONTELUKAST
  20. OMEPRAZOLE [Concomitant]
     Active Substance: OMEPRAZOLE
  21. PRIMIDONE [Concomitant]
     Active Substance: PRIMIDONE
  22. PROPRANOLOL [Concomitant]
     Active Substance: PROPRANOLOL HYDROCHLORIDE
  23. SERTRALINE HYDROCHLORIDE [Concomitant]
     Active Substance: SERTRALINE HYDROCHLORIDE
  24. UBRELVY [Concomitant]
     Active Substance: UBROGEPANT
  25. VALACYCLOVIR [Concomitant]
     Active Substance: VALACYCLOVIR HYDROCHLORIDE
  26. VITAMIN B12 [Concomitant]
     Active Substance: CYANOCOBALAMIN
  27. VITAMIN D3 [Concomitant]
     Active Substance: CHOLECALCIFEROL
  28. CALCIUM [Concomitant]
     Active Substance: CALCIUM
     Dosage: 600 MG
  29. EMGALITY [Concomitant]
     Active Substance: GALCANEZUMAB-GNLM
     Dosage: 120 MG/ML

REACTIONS (32)
  - Vitamin B1 decreased [Unknown]
  - Infusion site discharge [Not Recovered/Not Resolved]
  - Erythema [Not Recovered/Not Resolved]
  - Infusion site discharge [Not Recovered/Not Resolved]
  - Injection site discharge [Unknown]
  - Injection site haemorrhage [Unknown]
  - Injection site swelling [Unknown]
  - Sinusitis [Unknown]
  - Insomnia [Unknown]
  - Productive cough [Unknown]
  - Eating disorder [Unknown]
  - Thirst decreased [Unknown]
  - Taste disorder [Unknown]
  - Depression [Unknown]
  - Fall [Unknown]
  - Head injury [Unknown]
  - Joint injury [Unknown]
  - Limb injury [Unknown]
  - Concussion [Unknown]
  - Fall [Unknown]
  - Injection site pruritus [Not Recovered/Not Resolved]
  - Injection site discharge [Unknown]
  - Injection site haemorrhage [Recovered/Resolved]
  - Pain [Unknown]
  - Sleep disorder [Unknown]
  - Depressed mood [Unknown]
  - Injection site reaction [Not Recovered/Not Resolved]
  - Injection site discharge [Recovered/Resolved]
  - Fatigue [Recovered/Resolved]
  - Illness [Recovered/Resolved]
  - Nasopharyngitis [Recovered/Resolved]
  - Injection site haemorrhage [Recovered/Resolved]

NARRATIVE: CASE EVENT DATE: 20230101
